FAERS Safety Report 4635711-6 (Version None)
Quarter: 2005Q2

REPORT INFORMATION
  Report Type: 
  Country: None (occurrence: None)
  Receive Date: 20050413
  Receipt Date: 20050329
  Transmission Date: 20051028
  Serious: Yes (Other)
  Sender: FDA-Public Use
  Company Number: USA-2003-0009606

PATIENT
  Age: 46 Year
  Sex: Male
  Weight: 113.4 kg

DRUGS (14)
  1. OXYCONTIN [Suspect]
     Indication: PAIN
     Dosage: 10 MG, BID, ORAL
     Route: 048
  2. OXYCODONE HCL [Concomitant]
  3. CELEXA [Concomitant]
  4. ROBAXIN [Concomitant]
  5. NAPROSYN [Concomitant]
  6. EFFEXOR XR [Concomitant]
  7. VIOXX [Concomitant]
  8. PROZAC [Concomitant]
  9. SKELAXIN [Concomitant]
  10. BACLOFEN [Concomitant]
  11. CELEBREX [Concomitant]
  12. KLONOPIN [Concomitant]
  13. ELAVIL [Concomitant]
  14. LORCET-HD [Concomitant]

REACTIONS (23)
  - ANXIETY [None]
  - AORTIC ANEURYSM [None]
  - ARTHRALGIA [None]
  - CARBON MONOXIDE POISONING [None]
  - CARBOXYHAEMOGLOBIN INCREASED [None]
  - DEPRESSED LEVEL OF CONSCIOUSNESS [None]
  - DEPRESSION [None]
  - DRUG ABUSER [None]
  - DRUG DEPENDENCE [None]
  - DRUG HYPERSENSITIVITY [None]
  - DRUG WITHDRAWAL SYNDROME [None]
  - GAIT DISTURBANCE [None]
  - HYPERHIDROSIS [None]
  - LETHARGY [None]
  - MARFAN'S SYNDROME [None]
  - MENTAL DISORDER [None]
  - MIOSIS [None]
  - MOBILITY DECREASED [None]
  - NYSTAGMUS [None]
  - PAIN [None]
  - POSTURE ABNORMAL [None]
  - PUPIL FIXED [None]
  - WHEEZING [None]
